FAERS Safety Report 10952495 (Version 1)
Quarter: 2015Q1

REPORT INFORMATION
  Report Type: Spontaneous
  Country: US (occurrence: US)
  Receive Date: 20150325
  Receipt Date: 20150325
  Transmission Date: 20150721
  Serious: No
  Sender: FDA-Public Use
  Company Number: US-BIOGENIDEC-2015BI037761

PATIENT
  Age: 56 Year
  Sex: Female

DRUGS (4)
  1. TECFIDERA [Suspect]
     Active Substance: DIMETHYL FUMARATE
     Indication: MULTIPLE SCLEROSIS
     Route: 048
     Dates: start: 20130524
  2. CARVEDILOL. [Concomitant]
     Active Substance: CARVEDILOL
  3. B1 NATURAL [Concomitant]
  4. AMOXICILLIN-POT CLAVULANATE [Concomitant]

REACTIONS (2)
  - Migraine [Unknown]
  - Ear infection [Unknown]
